FAERS Safety Report 18366261 (Version 1)
Quarter: 2020Q4

REPORT INFORMATION
  Report Type: Report from Study
  Country: US (occurrence: US)
  Receive Date: 20201009
  Receipt Date: 20201009
  Transmission Date: 20210114
  Serious: Yes (Hospitalization)
  Sender: FDA-Public Use
  Company Number: US-ROCHE-2689826

PATIENT
  Age: 66 Year
  Sex: Male
  Weight: 105.8 kg

DRUGS (4)
  1. OBINUTUZUMAB. [Suspect]
     Active Substance: OBINUTUZUMAB
     Dosage: 1000 MG IV ON DAY 8, CYCLE 1 1000 MG IV ON DAY 15, CYCLE 1 1000 MG IV ON DAY 1,?CYCLE 2-6
     Route: 042
  2. OBINUTUZUMAB. [Suspect]
     Active Substance: OBINUTUZUMAB
     Dosage: DAY 2 CYCLE 1
     Route: 042
  3. OBINUTUZUMAB. [Suspect]
     Active Substance: OBINUTUZUMAB
     Indication: CHRONIC LYMPHOCYTIC LEUKAEMIA
     Dosage: DATE OF MOST RECENT DOSE OF OBINUTUZUMAB PRIOR TO ADVERSE EVENT: 03/SEP/2020 1000 MG
     Route: 042
     Dates: start: 20200806
  4. IBRUTINIB [Suspect]
     Active Substance: IBRUTINIB
     Indication: CHRONIC LYMPHOCYTIC LEUKAEMIA
     Dosage: MOST RECENT DOSE: 06/SEP/2020 1260 MG?ON DAYS 1-28, CYCLES 1-19
     Route: 048
     Dates: start: 20200806

REACTIONS (1)
  - Presyncope [Recovered/Resolved]

NARRATIVE: CASE EVENT DATE: 20200906
